FAERS Safety Report 9617890 (Version 2)
Quarter: 2013Q4

REPORT INFORMATION
  Report Type: Spontaneous
  Country: US (occurrence: US)
  Receive Date: 20131011
  Receipt Date: 20131023
  Transmission Date: 20140711
  Serious: Yes (Hospitalization)
  Sender: FDA-Public Use
  Company Number: US-BAXTER-2013BAX039044

PATIENT
  Age: 17 Month
  Sex: Male

DRUGS (3)
  1. ADVATE [Suspect]
     Indication: FACTOR VIII DEFICIENCY
     Route: 042
  2. ADVATE [Suspect]
     Route: 042
     Dates: start: 20131002
  3. ADVATE [Suspect]
     Route: 042

REACTIONS (3)
  - Fall [Unknown]
  - Head injury [Unknown]
  - Drug dose omission [Unknown]
